FAERS Safety Report 7329032-0 (Version None)
Quarter: 2011Q1

REPORT INFORMATION
  Report Type: 
  Country: None (occurrence: None)
  Receive Date: 20110303
  Receipt Date: 20110224
  Transmission Date: 20110831
  Serious: Yes (Death, Hospitalization, Other)
  Sender: FDA-Public Use
  Company Number: JP-BRISTOL-MYERS SQUIBB COMPANY-15116932

PATIENT
  Age: 85 Year
  Sex: Female
  Weight: 36 kg

DRUGS (14)
  1. MICARDIS [Concomitant]
     Dosage: TABS
     Route: 048
  2. NORMAL SALINE [Concomitant]
     Dates: end: 20100315
  3. SPRYCEL [Suspect]
     Indication: CHRONIC MYELOID LEUKAEMIA
     Dosage: 15MAR10-17MAR10,100MG 23MAR10-29MAR10,50MG 31MAR10-02APR10,50MG
     Route: 048
     Dates: start: 20100315, end: 20100402
  4. VERAPAMIL HCL [Concomitant]
     Dosage: TABS
     Route: 048
  5. ALLEGRA [Concomitant]
     Dosage: TABS
     Route: 048
     Dates: end: 20100405
  6. KALIMATE [Concomitant]
     Dosage: POWDER
     Route: 048
     Dates: end: 20100405
  7. ZYLORIC [Concomitant]
     Dates: end: 20100405
  8. CRAVIT [Concomitant]
     Dosage: SOL,EYE,FEW DROPS AT ONCE,FEW TIMES A DAY
     Dates: end: 20100405
  9. PREDOHAN [Concomitant]
     Route: 048
     Dates: end: 20100405
  10. MAGLAX [Concomitant]
     Dosage: UNK-19MAR2010 20MAR10-05APR10
     Route: 048
     Dates: end: 20100405
  11. CEFOPERAZONE SODIUM + SULBACTAM SODIUM [Concomitant]
     Route: 042
     Dates: end: 20100315
  12. LASIX [Concomitant]
     Route: 048
     Dates: end: 20100405
  13. TEPRENONE [Concomitant]
     Dosage: CAPS
     Route: 048
     Dates: end: 20100405
  14. ESPO [Concomitant]
     Dosage: 1DF=6000 UNITS,INJ
     Route: 058

REACTIONS (5)
  - PNEUMONIA ASPIRATION [None]
  - SHOCK HAEMORRHAGIC [None]
  - HYPONATRAEMIA [None]
  - RENAL FAILURE [None]
  - HAEMATEMESIS [None]
